FAERS Safety Report 9306486 (Version 4)
Quarter: 2013Q2

REPORT INFORMATION
  Report Type: Spontaneous
  Country: GR (occurrence: GR)
  Receive Date: 20130523
  Receipt Date: 20130610
  Transmission Date: 20140414
  Serious: Yes (Death, Hospitalization)
  Sender: FDA-Public Use
  Company Number: GR-JNJFOC-20130513260

PATIENT
  Age: 79 Year
  Sex: Female

DRUGS (3)
  1. REMICADE [Suspect]
     Indication: RHEUMATOID ARTHRITIS
     Dosage: STRENGHT (100 MG/VIAL)
     Route: 042
     Dates: start: 20090602
  2. REMICADE [Suspect]
     Indication: RHEUMATOID ARTHRITIS
     Dosage: LAST INFUSION ON 4-5 APR-2013.??DOSE WAS 100MG PER VIAL
     Route: 042
     Dates: start: 201304, end: 20130405
  3. CYCLOSPORINE [Concomitant]
     Indication: RHEUMATOID ARTHRITIS
     Route: 048
     Dates: start: 20100315, end: 20130510

REACTIONS (10)
  - Atrial fibrillation [Fatal]
  - Septic shock [Fatal]
  - Hypotension [Unknown]
  - Infection [Unknown]
  - Tachycardia [Unknown]
  - Tachypnoea [Unknown]
  - White blood cell count decreased [Unknown]
  - Renal impairment [Unknown]
  - Diabetes mellitus [Fatal]
  - Pyrexia [Unknown]
